FAERS Safety Report 6592415-0 (Version None)
Quarter: 2010Q1

REPORT INFORMATION
  Report Type: 
  Country: None (occurrence: None)
  Receive Date: 20100221
  Receipt Date: 20091012
  Transmission Date: 20100710
  Serious: No
  Sender: FDA-Public Use
  Company Number: US-ALLERGAN-0914095US

PATIENT
  Sex: Female

DRUGS (5)
  1. BOTOX COSMETIC [Suspect]
     Indication: SKIN WRINKLING
     Dosage: UNK
     Route: 030
     Dates: start: 20091007, end: 20091007
  2. BOTOX COSMETIC [Suspect]
     Dosage: UNK
     Dates: start: 20090301, end: 20090301
  3. JUVEDERM [Suspect]
     Dosage: UNK
     Dates: start: 20091007, end: 20091007
  4. SUMAXIN [Concomitant]
     Indication: ACNE
  5. LUNESTA [Concomitant]

REACTIONS (2)
  - RASH [None]
  - SENSORY DISTURBANCE [None]
